FAERS Safety Report 8151163-6 (Version None)
Quarter: 2012Q1

REPORT INFORMATION
  Report Type: 
  Country: None (occurrence: None)
  Receive Date: 20120220
  Receipt Date: 20120210
  Transmission Date: 20120608
  Serious: Yes (Life-Threatening, Hospitalization)
  Sender: FDA-Public Use
  Company Number: FR-GLAXOSMITHKLINE-B0780672A

PATIENT
  Sex: Female

DRUGS (6)
  1. POLARAMINE [Suspect]
     Indication: PREMEDICATION
     Dosage: 5MG SINGLE DOSE
     Route: 042
     Dates: start: 20120102, end: 20120102
  2. ZOFRAN [Suspect]
     Indication: PREMEDICATION
     Dosage: 8MG SINGLE DOSE
     Route: 042
     Dates: start: 20120102, end: 20120102
  3. CARBOPLATIN [Suspect]
     Indication: OVARIAN EPITHELIAL CANCER
     Dosage: 260MG SINGLE DOSE
     Route: 042
     Dates: start: 20120102, end: 20120102
  4. PACLITAXEL [Suspect]
     Indication: OVARIAN EPITHELIAL CANCER
     Dosage: 222MG SINGLE DOSE
     Route: 042
     Dates: start: 20120102, end: 20120102
  5. SOLU-MEDROL [Concomitant]
     Indication: PREMEDICATION
     Route: 042
     Dates: start: 20120102
  6. ZANTAC [Concomitant]
     Indication: PREMEDICATION
     Dates: start: 20120102

REACTIONS (4)
  - DYSPNOEA [None]
  - BRONCHOSPASM [None]
  - TACHYCARDIA [None]
  - HYPERTENSION [None]
